FAERS Safety Report 7813179-6 (Version None)
Quarter: 2011Q4

REPORT INFORMATION
  Report Type: 
  Country: None (occurrence: None)
  Receive Date: 20111013
  Receipt Date: 20111006
  Transmission Date: 20120403
  Serious: No
  Sender: FDA-Public Use
  Company Number: US-AMGEN-USASP2011039323

PATIENT
  Age: 67 Year
  Sex: Female

DRUGS (6)
  1. HYDROCHLOROTHIAZIDE [Concomitant]
     Dosage: 12.5 MG, UNK
  2. DOXEPIN [Concomitant]
     Dosage: 6 MG, PRN
  3. COZAAR [Concomitant]
     Dosage: 25 MG, UNK
  4. PROZAC [Concomitant]
     Dosage: 20 MG, UNK
  5. XANAX [Concomitant]
     Dosage: 0.5 MG, UNK
  6. NPLATE [Suspect]
     Indication: IDIOPATHIC THROMBOCYTOPENIC PURPURA
     Dosage: 1.3 MUG/KG, UNK
     Dates: start: 20100811, end: 20110503

REACTIONS (2)
  - DIZZINESS [None]
  - FATIGUE [None]
